FAERS Safety Report 6449537-4 (Version None)
Quarter: 2009Q4

REPORT INFORMATION
  Report Type: 
  Country: None (occurrence: None)
  Receive Date: 20091120
  Receipt Date: 20091109
  Transmission Date: 20100525
  Serious: No
  Sender: FDA-Public Use
  Company Number: US-B.I. PHARMACEUTICALS,INC./RIDGEFIELD-2009-BP-13094BP

PATIENT
  Age: 36 Year
  Sex: Male

DRUGS (6)
  1. ZANTAC 150 [Suspect]
     Indication: DYSPEPSIA
     Dosage: 300 MG
     Route: 048
     Dates: start: 20091001
  2. LEXAPRO [Suspect]
     Indication: DEPRESSION
     Dosage: 10 MG
     Route: 048
     Dates: start: 20090801
  3. MELATONIN [Concomitant]
     Indication: INSOMNIA
  4. CALTRATE [Concomitant]
     Indication: OSTEOPOROSIS
  5. ESTER C VITAMIN [Concomitant]
     Indication: PROPHYLAXIS
  6. CENTRUM MULTIVITAMIN [Concomitant]
     Indication: PROPHYLAXIS

REACTIONS (1)
  - DRUG INEFFECTIVE [None]
